FAERS Safety Report 7943708-3 (Version None)
Quarter: 2011Q4

REPORT INFORMATION
  Report Type: 
  Country: None (occurrence: None)
  Receive Date: 20111128
  Receipt Date: 20111121
  Transmission Date: 20120403
  Serious: Yes (Hospitalization, Other)
  Sender: FDA-Public Use
  Company Number: FR-ABBOTT-10P-056-0689682-00

PATIENT
  Age: 24 Year
  Sex: Female

DRUGS (3)
  1. DEPAKOTE [Suspect]
     Indication: PRODUCT USED FOR UNKNOWN INDICATION
     Dosage: 125 CAPSULES 500 MG EACH
     Route: 048
  2. TIAPRIDE [Suspect]
     Indication: PRODUCT USED FOR UNKNOWN INDICATION
     Dosage: 40 CAPSULES 100 MG EACH
     Route: 048
  3. ALPRAZOLAM [Suspect]
     Indication: PRODUCT USED FOR UNKNOWN INDICATION
     Dosage: 30 CAPSULES 0.5 MG EACH
     Route: 048

REACTIONS (15)
  - OVERDOSE [None]
  - LOSS OF CONSCIOUSNESS [None]
  - STATUS EPILEPTICUS [None]
  - DRUG LEVEL INCREASED [None]
  - ENCEPHALOPATHY [None]
  - BICYTOPENIA [None]
  - RHABDOMYOLYSIS [None]
  - SUICIDE ATTEMPT [None]
  - LACTIC ACIDOSIS [None]
  - METABOLIC ACIDOSIS [None]
  - HYPERAMMONAEMIA [None]
  - CONVULSION [None]
  - LEUKOPENIA [None]
  - THROMBOCYTOPENIA [None]
  - TOXICITY TO VARIOUS AGENTS [None]
